FAERS Safety Report 12522678 (Version 1)
Quarter: 2016Q3

REPORT INFORMATION
  Report Type: Spontaneous
  Country: US (occurrence: US)
  Receive Date: 20160701
  Receipt Date: 20160701
  Transmission Date: 20161109
  Serious: No
  Sender: FDA-Public Use
  Company Number: US-009507513-1606USA014672

PATIENT
  Sex: Female

DRUGS (2)
  1. BELSOMRA [Suspect]
     Active Substance: SUVOREXANT
     Dosage: 15 MG, NOT SPECIFIED IF THE PATIENT ONLY TOOK 1 TABLET AT NIGHT
     Route: 048
  2. BELSOMRA [Suspect]
     Active Substance: SUVOREXANT
     Indication: INSOMNIA
     Dosage: 10 MG, NOT SPECIFIED IF THE PATIENT ONLY TOOK 1 TABLET AT NIGHT
     Route: 048

REACTIONS (1)
  - Drug ineffective [Unknown]
